FAERS Safety Report 15395654 (Version 1)
Quarter: 2018Q3

REPORT INFORMATION
  Report Type: Spontaneous
  Country: US (occurrence: US)
  Receive Date: 20180912
  Receipt Date: 20180912
  Transmission Date: 20181010
  Serious: Yes (Other)
  Sender: FDA-Public Use
  Company Number: None

PATIENT
  Age: 65 Year
  Sex: Female
  Weight: 74.39 kg

DRUGS (11)
  1. HYOSCYAMINE 0.125MG TAB SUBLINGUAL?VIRTUS [Suspect]
     Active Substance: HYOSCYAMINE SULFATE
     Indication: PRODUCT USED FOR UNKNOWN INDICATION
     Dosage: 1 PILL BEFORE MEALS
     Route: 048
  2. TIZANIDINE. [Concomitant]
     Active Substance: TIZANIDINE
  3. POT CHLORIDE [Concomitant]
     Active Substance: POTASSIUM CHLORIDE
  4. BAYER ASPIRIN [Concomitant]
     Active Substance: ASPIRIN
  5. HYOSCYAMINE. [Concomitant]
     Active Substance: HYOSCYAMINE
  6. LEVOTHYROXIN [Concomitant]
     Active Substance: LEVOTHYROXINE
  7. METOPROLOL TARTRATE. [Concomitant]
     Active Substance: METOPROLOL TARTRATE
  8. TRIAMESOLONE [Concomitant]
  9. ZOLPIDEM [Concomitant]
     Active Substance: ZOLPIDEM\ZOLPIDEM TARTRATE
  10. ATORVASTATIN [Concomitant]
     Active Substance: ATORVASTATIN
  11. OXYCONTIN [Concomitant]
     Active Substance: OXYCODONE HYDROCHLORIDE

REACTIONS (4)
  - Pain [None]
  - Gait disturbance [None]
  - Visual impairment [None]
  - Recalled product [None]

NARRATIVE: CASE EVENT DATE: 20160311
